FAERS Safety Report 5357587-4 (Version None)
Quarter: 2007Q2

REPORT INFORMATION
  Report Type: 
  Country: None (occurrence: None)
  Receive Date: 20070614
  Receipt Date: 20070606
  Transmission Date: 20071010
  Serious: Yes (Hospitalization)
  Sender: FDA-Public Use
  Company Number: IN-ELI_LILLY_AND_COMPANY-IN200706001668

PATIENT
  Age: 28 Year
  Sex: Female

DRUGS (2)
  1. HUMULIN 70/30 [Suspect]
     Indication: GESTATIONAL DIABETES
     Dosage: 12 U, EACH MORNING
     Route: 058
     Dates: start: 20070101, end: 20070303
  2. HUMULIN 70/30 [Suspect]
     Dosage: 8 U, EACH EVENING
     Route: 058
     Dates: start: 20070101, end: 20070303

REACTIONS (5)
  - ABORTION SPONTANEOUS [None]
  - BLOOD PRESSURE DECREASED [None]
  - DRUG EXPOSURE DURING PREGNANCY [None]
  - HAEMORRHAGE [None]
  - HEART RATE DECREASED [None]
